FAERS Safety Report 9164021 (Version 1)
Quarter: 2013Q1

REPORT INFORMATION
  Report Type: Spontaneous
  Country: US (occurrence: US)
  Receive Date: 20130313
  Receipt Date: 20130313
  Transmission Date: 20140127
  Serious: Yes (Other)
  Sender: FDA-Public Use
  Company Number: US-RB-042962-12

PATIENT
  Age: 20 Year
  Sex: Female

DRUGS (5)
  1. SUBOXONE FILM [Suspect]
     Indication: DRUG DEPENDENCE
     Dosage: SUBOXONE FILM; DOSING DETAILS UNKNOWN
     Route: 065
  2. SUBOXONE FILM [Suspect]
     Dosage: SUBOXONE FILM
     Route: 060
     Dates: start: 2012
  3. SUBOXONE TABLETS [Suspect]
     Indication: DRUG DEPENDENCE
     Route: 060
     Dates: start: 2009, end: 2012
  4. SEROQUEL [Concomitant]
     Indication: INSOMNIA
     Dosage: DOSING DETAILS UNKNOWN
     Route: 065
     Dates: start: 2012
  5. VISTARIL [Concomitant]
     Indication: ANXIETY
     Dosage: 30 MG DAILY/AS NEEDED
     Route: 065

REACTIONS (6)
  - Drug withdrawal syndrome [Not Recovered/Not Resolved]
  - Drug dependence [Not Recovered/Not Resolved]
  - Substance abuse [Not Recovered/Not Resolved]
  - Insomnia [Recovering/Resolving]
  - Anxiety [Not Recovered/Not Resolved]
  - Hepatitis B [Not Recovered/Not Resolved]
